FAERS Safety Report 6617914-4 (Version None)
Quarter: 2010Q1

REPORT INFORMATION
  Report Type: 
  Country: None (occurrence: None)
  Receive Date: 20100308
  Receipt Date: 20100301
  Transmission Date: 20100710
  Serious: Yes (Other)
  Sender: FDA-Public Use
  Company Number: US-SANOFI-AVENTIS-2010SA011738

PATIENT
  Age: 64 Year
  Sex: Female

DRUGS (1)
  1. MULTAQ [Suspect]
     Route: 048
     Dates: start: 20091228

REACTIONS (2)
  - ATRIAL FIBRILLATION [None]
  - BLOOD CREATININE ABNORMAL [None]
